FAERS Safety Report 7374757-4 (Version None)
Quarter: 2011Q1

REPORT INFORMATION
  Report Type: 
  Country: None (occurrence: None)
  Receive Date: 20110325
  Receipt Date: 20101014
  Transmission Date: 20110831
  Serious: No
  Sender: FDA-Public Use
  Company Number: US-MYLANLABS-2010S1019013

PATIENT
  Age: 60 Year
  Sex: Female

DRUGS (2)
  1. FENTANYL-100 [Suspect]
     Indication: CANCER PAIN
     Route: 062
     Dates: start: 20050101, end: 20101012
  2. ATIVAN [Suspect]
     Dates: start: 19980101, end: 20101012

REACTIONS (3)
  - BONE PAIN [None]
  - DRUG WITHDRAWAL SYNDROME [None]
  - FORMICATION [None]
